FAERS Safety Report 6669188-6 (Version None)
Quarter: 2010Q2

REPORT INFORMATION
  Report Type: 
  Country: None (occurrence: None)
  Receive Date: 20100406
  Receipt Date: 20100329
  Transmission Date: 20101027
  Serious: Yes (Other)
  Sender: FDA-Public Use
  Company Number: US-AMGEN-QUU402635

PATIENT
  Sex: Female

DRUGS (2)
  1. NPLATE [Suspect]
     Indication: IDIOPATHIC THROMBOCYTOPENIC PURPURA
     Dates: start: 20090708, end: 20100120
  2. PREDNISONE TAB [Concomitant]

REACTIONS (2)
  - NO THERAPEUTIC RESPONSE [None]
  - THERAPEUTIC RESPONSE DECREASED [None]
